FAERS Safety Report 11106804 (Version 4)
Quarter: 2015Q4

REPORT INFORMATION
  Report Type: Spontaneous
  Country: US (occurrence: US)
  Receive Date: 20150512
  Receipt Date: 20151130
  Transmission Date: 20160304
  Serious: No
  Sender: FDA-Public Use
  Company Number: US-PFIZER INC-2015158876

PATIENT
  Age: 9 Year
  Sex: Female
  Weight: 26 kg

DRUGS (2)
  1. GENOTROPIN [Suspect]
     Active Substance: SOMATROPIN
     Indication: BLOOD GROWTH HORMONE DECREASED
     Dosage: 1.2 MG, 7X/WEEK
     Route: 058
     Dates: start: 20150307
  2. GENOTROPIN [Suspect]
     Active Substance: SOMATROPIN
     Indication: HORMONE THERAPY
     Dosage: 1.6 MG, 7DAYS A WEEK
     Route: 058

REACTIONS (1)
  - Headache [Recovering/Resolving]
